FAERS Safety Report 8259841-5 (Version None)
Quarter: 2012Q2

REPORT INFORMATION
  Report Type: 
  Country: None (occurrence: None)
  Receive Date: 20120404
  Receipt Date: 20110609
  Transmission Date: 20120825
  Serious: Yes (Hospitalization)
  Sender: FDA-Public Use
  Company Number: US-GLAXOSMITHKLINE-A0933641A

PATIENT
  Age: 47 Year
  Sex: Female

DRUGS (1)
  1. AVANDIA [Suspect]
     Indication: DIABETES MELLITUS
     Dosage: 8MG PER DAY
     Route: 048
     Dates: start: 20040101, end: 20090101

REACTIONS (7)
  - CEREBROVASCULAR ACCIDENT [None]
  - ALOPECIA [None]
  - ARTHRALGIA [None]
  - JAUNDICE [None]
  - BACK PAIN [None]
  - NAUSEA [None]
  - ABDOMINAL PAIN [None]
